FAERS Safety Report 10164578 (Version 2)
Quarter: 2014Q2

REPORT INFORMATION
  Report Type: Spontaneous
  Country: US (occurrence: US)
  Receive Date: 20140510
  Receipt Date: 20140510
  Transmission Date: 20141212
  Serious: No
  Sender: FDA-Public Use
  Company Number: US-BRISTOL-MYERS SQUIBB COMPANY-19576529

PATIENT
  Age: 63 Year
  Sex: Male
  Weight: 131.52 kg

DRUGS (3)
  1. BYDUREON [Suspect]
     Indication: TYPE 2 DIABETES MELLITUS
     Route: 058
     Dates: start: 201310, end: 2013
  2. METFORMIN HCL [Suspect]
  3. GLIMEPIRIDE [Suspect]

REACTIONS (5)
  - Blood glucose increased [Not Recovered/Not Resolved]
  - Underdose [Unknown]
  - Expired product administered [Unknown]
  - Product quality issue [Unknown]
  - Injection site haemorrhage [Unknown]
